FAERS Safety Report 13448427 (Version 1)
Quarter: 2017Q2

REPORT INFORMATION
  Report Type: Report from Study
  Country: US (occurrence: US)
  Receive Date: 20170417
  Receipt Date: 20170417
  Transmission Date: 20170830
  Serious: Yes (Hospitalization)
  Sender: FDA-Public Use
  Company Number: US-JNJFOC-20170121194

PATIENT
  Age: 56 Year
  Sex: Female
  Weight: 129.71 kg

DRUGS (17)
  1. SYNTHROID [Concomitant]
     Active Substance: LEVOTHYROXINE SODIUM
     Route: 048
  2. INSULIN GLARGINE [Concomitant]
     Active Substance: INSULIN GLARGINE
     Route: 058
  3. VITAMIN D2 [Concomitant]
     Active Substance: ERGOCALCIFEROL
     Route: 048
  4. CRESTOR [Concomitant]
     Active Substance: ROSUVASTATIN CALCIUM
     Route: 048
  5. XARELTO [Concomitant]
     Active Substance: RIVAROXABAN
  6. ONDANSETRON [Concomitant]
     Active Substance: ONDANSETRON
  7. DURAGESIC [Concomitant]
     Active Substance: FENTANYL
  8. PREDNISONE. [Concomitant]
     Active Substance: PREDNISONE
  9. PROTONIX [Concomitant]
     Active Substance: PANTOPRAZOLE SODIUM
     Route: 048
  10. PROVENTIL [Concomitant]
     Active Substance: ALBUTEROL
  11. LASIX [Concomitant]
     Active Substance: FUROSEMIDE
     Route: 048
  12. EFFEXOR [Concomitant]
     Active Substance: VENLAFAXINE HYDROCHLORIDE
     Route: 048
  13. TRAMADOL. [Concomitant]
     Active Substance: TRAMADOL
  14. GABAPENTIN. [Concomitant]
     Active Substance: GABAPENTIN
  15. IMBRUVICA [Suspect]
     Active Substance: IBRUTINIB
     Indication: MANTLE CELL LYMPHOMA
     Route: 048
     Dates: start: 20161222, end: 201702
  16. RITUXAN [Suspect]
     Active Substance: RITUXIMAB
     Indication: MANTLE CELL LYMPHOMA
  17. DILAUDID [Concomitant]
     Active Substance: HYDROMORPHONE HYDROCHLORIDE

REACTIONS (16)
  - Dyspnoea [Unknown]
  - Fall [Unknown]
  - Pleural effusion [Unknown]
  - Blood urea increased [Unknown]
  - Skin lesion [Unknown]
  - Rash vesicular [Unknown]
  - Fatigue [Unknown]
  - Hyperuricaemia [Unknown]
  - Lymphocyte count decreased [Unknown]
  - Herpes zoster [Unknown]
  - Haemoglobin decreased [Unknown]
  - Rash macular [Unknown]
  - Decreased appetite [Unknown]
  - Haemorrhoids [Unknown]
  - Blood chloride decreased [Unknown]
  - Anxiety [Unknown]

NARRATIVE: CASE EVENT DATE: 2017
